FAERS Safety Report 4317483-8 (Version None)
Quarter: 2004Q1

REPORT INFORMATION
  Report Type: 
  Country: None (occurrence: None)
  Receive Date: 20040312
  Receipt Date: 20040301
  Transmission Date: 20041129
  Serious: Yes (Hospitalization)
  Sender: FDA-Public Use
  Company Number: US-JNJFOC-20031204953

PATIENT
  Sex: Female

DRUGS (19)
  1. REMICADE [Suspect]
     Indication: RHEUMATOID ARTHRITIS
     Dosage: 5 MG/KG, INTRAVENOUS
     Route: 042
     Dates: start: 20030101
  2. PREMARIN [Concomitant]
  3. HYZAAR [Concomitant]
  4. DARVOCET (PROPACET) [Concomitant]
  5. AMBIEN [Concomitant]
  6. CALCIUM (CALCIUM) [Concomitant]
  7. MULTIVITAMIN (MULTIVITAMINS) [Concomitant]
  8. LIBRAX [Concomitant]
  9. FOSMAX (ALENDRONATE SODIUM) [Concomitant]
  10. PROZAC [Concomitant]
  11. VIACTIV (CALCIUM) [Concomitant]
  12. BEXTRA [Concomitant]
  13. PREDNISONE [Concomitant]
  14. METHOTREXATE [Concomitant]
  15. LASIX [Concomitant]
  16. ATROVENT [Concomitant]
  17. FOLIC ACID [Concomitant]
  18. POTASSIUM (POTASSIUM) [Concomitant]
  19. NEURONTIN [Concomitant]

REACTIONS (36)
  - ALANINE AMINOTRANSFERASE INCREASED [None]
  - ARTHRALGIA [None]
  - ASPARTATE AMINOTRANSFERASE INCREASED [None]
  - BACK PAIN [None]
  - BLOOD POTASSIUM DECREASED [None]
  - BLOOD THYROID STIMULATING HORMONE DECREASED [None]
  - CELLULITIS [None]
  - DIARRHOEA [None]
  - DIPLOPIA [None]
  - DISEASE RECURRENCE [None]
  - DRY MOUTH [None]
  - ERYTHEMA [None]
  - FAECES DISCOLOURED [None]
  - FATIGUE [None]
  - FELTY'S SYNDROME [None]
  - GAMMOPATHY [None]
  - HYPOTRICHOSIS [None]
  - KERATOCONJUNCTIVITIS SICCA [None]
  - LEUKOPENIA [None]
  - LIP ULCERATION [None]
  - LOCALISED INFECTION [None]
  - LUPUS-LIKE SYNDROME [None]
  - LYMPHOPENIA [None]
  - MYALGIA [None]
  - OEDEMA PERIPHERAL [None]
  - OSTEOPOROSIS [None]
  - PAROTID GLAND ENLARGEMENT [None]
  - PERICARDIAL EFFUSION [None]
  - PERICARDITIS [None]
  - PHOTOSENSITIVITY REACTION [None]
  - PLATELET COUNT DECREASED [None]
  - PLEURITIC PAIN [None]
  - PROTEIN TOTAL INCREASED [None]
  - SLEEP DISORDER [None]
  - TENDERNESS [None]
  - WHITE BLOOD CELL COUNT DECREASED [None]
